FAERS Safety Report 4855443-9 (Version None)
Quarter: 2005Q4

REPORT INFORMATION
  Report Type: 
  Country: None (occurrence: None)
  Receive Date: 20051125
  Receipt Date: 20050907
  Transmission Date: 20060501
  Serious: Yes (Hospitalization)
  Sender: FDA-Public Use
  Company Number: COV2-2005-00321

PATIENT
  Age: 70 Year
  Sex: Female
  Weight: 42.5 kg

DRUGS (1)
  1. FOSRENOL [Suspect]
     Indication: HYPERPHOSPHATAEMIA
     Dosage: 2250 MG, 1X/DAY:QD, ORAL
     Route: 048
     Dates: start: 20050428

REACTIONS (1)
  - ARTERIOVENOUS FISTULA THROMBOSIS [None]
